FAERS Safety Report 13890475 (Version 2)
Quarter: 2017Q3

REPORT INFORMATION
  Report Type: Report from Study
  Country: None (occurrence: IT)
  Receive Date: 20170822
  Receipt Date: 20170905
  Transmission Date: 20171127
  Serious: Yes (Hospitalization)
  Sender: FDA-Public Use
  Company Number: IT-ABBVIE-17K-083-2077774-00

PATIENT
  Sex: Male

DRUGS (2)
  1. DUODOPA [Suspect]
     Active Substance: CARBIDOPA\LEVODOPA
     Indication: PARKINSON^S DISEASE
     Dosage: MD 7+3??CR 2,8??ED 2,5
     Route: 050
     Dates: start: 20170214, end: 201705
  2. DUODOPA [Suspect]
     Active Substance: CARBIDOPA\LEVODOPA
     Route: 050
     Dates: start: 2017, end: 20170819

REACTIONS (3)
  - Femur fracture [Unknown]
  - Device kink [Unknown]
  - Fall [Unknown]

NARRATIVE: CASE EVENT DATE: 2017
